FAERS Safety Report 6705320-3 (Version None)
Quarter: 2010Q2

REPORT INFORMATION
  Report Type: 
  Country: None (occurrence: None)
  Receive Date: 20100501
  Receipt Date: 20100420
  Transmission Date: 20101027
  Serious: Yes (Hospitalization, Other)
  Sender: FDA-Public Use
  Company Number: US-ELI_LILLY_AND_COMPANY-US201003007785

PATIENT
  Sex: Female

DRUGS (14)
  1. FORTEO [Suspect]
     Indication: OSTEOPOROSIS
     Dosage: 20 UG, DAILY (1/D)
     Dates: start: 20090916
  2. ZOCOR [Concomitant]
  3. CALCIUM W/VITAMIN D NOS [Concomitant]
  4. COREG [Concomitant]
  5. SYNTHROID [Concomitant]
  6. SINGULAIR [Concomitant]
  7. ASPIRIN [Concomitant]
  8. FLOVENT [Concomitant]
  9. SPIRIVA [Concomitant]
  10. LISINOPRIL [Concomitant]
  11. ATENOLOL [Concomitant]
  12. FLUOXETINE [Concomitant]
     Dosage: 40 MG, EACH EVENING
  13. SIMVASTATIN [Concomitant]
     Dosage: 40 MG, EACH EVENING
  14. MINERAL TAB [Concomitant]
     Dosage: UNK, DAILY (1/D)

REACTIONS (7)
  - ASTHMA [None]
  - CHRONIC OBSTRUCTIVE PULMONARY DISEASE [None]
  - DYSPNOEA [None]
  - FACE INJURY [None]
  - FALL [None]
  - GAIT DISTURBANCE [None]
  - ONYCHOCLASIS [None]
